FAERS Safety Report 18854716 (Version 1)
Quarter: 2021Q1

REPORT INFORMATION
  Report Type: Report from Study
  Country: FR (occurrence: FR)
  Receive Date: 20210205
  Receipt Date: 20210205
  Transmission Date: 20210420
  Serious: Yes (Hospitalization, Other)
  Sender: FDA-Public Use
  Company Number: FR-BRISTOL-MYERS SQUIBB COMPANY-BMS-2021-009694

PATIENT
  Age: 51 Year
  Sex: Male

DRUGS (1)
  1. APIXABAN [Suspect]
     Active Substance: APIXABAN
     Indication: EMBOLISM VENOUS
     Dosage: 5 MG TWICE A DAY OR 2.5 MG TWICE A DAY ACCORDING TO THE RANDOMIZATION GROUP
     Route: 048
     Dates: start: 20190523

REACTIONS (1)
  - Bacteraemia [Recovered/Resolved]

NARRATIVE: CASE EVENT DATE: 20190701
